FAERS Safety Report 4281253-X (Version None)
Quarter: 2004Q1

REPORT INFORMATION
  Report Type: 
  Country: None (occurrence: None)
  Receive Date: 20040112
  Receipt Date: 20030203
  Transmission Date: 20041129
  Serious: Yes (Other)
  Sender: FDA-Public Use
  Company Number: NSADSS2003005888

PATIENT
  Age: 32 Year
  Sex: Male

DRUGS (1)
  1. REOPRO [Suspect]
     Indication: ANGIOPLASTY
     Dosage: 1 IN 1 AS NECESSARY, INTRAVENOUS DRIP
     Route: 041
     Dates: start: 20030130, end: 20030130

REACTIONS (1)
  - THROMBOCYTOPENIA [None]
